FAERS Safety Report 18639023 (Version 1)
Quarter: 2020Q4

REPORT INFORMATION
  Report Type: Spontaneous
  Country: US (occurrence: US)
  Receive Date: 20201218
  Receipt Date: 20201218
  Transmission Date: 20210114
  Serious: No
  Sender: FDA-Public Use
  Company Number: US-ENDO PHARMACEUTICALS INC-2019-108158

PATIENT
  Age: 56 Year
  Sex: Male
  Weight: 107.3 kg

DRUGS (3)
  1. XIAFLEX [Suspect]
     Active Substance: COLLAGENASE CLOSTRIDIUM HISTOLYTICUM
     Dosage: UNK UNKNOWN, CYCLE 1, INJECTION 2
     Route: 026
     Dates: start: 2019
  2. XIAFLEX [Suspect]
     Active Substance: COLLAGENASE CLOSTRIDIUM HISTOLYTICUM
     Dosage: UNK UNKNOWN, CYCLE 2, INJECTION 1
     Route: 026
     Dates: start: 20191105
  3. XIAFLEX [Suspect]
     Active Substance: COLLAGENASE CLOSTRIDIUM HISTOLYTICUM
     Indication: PEYRONIE^S DISEASE
     Dosage: UNK UNKNOWN, CYCLE 1, INJECTION 1
     Route: 026
     Dates: start: 20190911

REACTIONS (5)
  - Penile contusion [Unknown]
  - Injection site nodule [Not Recovered/Not Resolved]
  - Injection site pain [Not Recovered/Not Resolved]
  - Testicular swelling [Unknown]
  - Penile swelling [Unknown]

NARRATIVE: CASE EVENT DATE: 20190912
